FAERS Safety Report 12868854 (Version 2)
Quarter: 2017Q1

REPORT INFORMATION
  Report Type: Report from Study
  Country: US (occurrence: US)
  Receive Date: 20161020
  Receipt Date: 20170124
  Transmission Date: 20170428
  Serious: No
  Sender: FDA-Public Use
  Company Number: US-AMGEN-USASL2016099694

PATIENT
  Age: 64 Year
  Sex: Male

DRUGS (2)
  1. REPATHA [Suspect]
     Active Substance: EVOLOCUMAB
     Indication: LIPOPROTEIN (A) INCREASED
     Dosage: 140 MG, Q2WK
     Route: 065
     Dates: start: 20160531
  2. CRESTOR [Concomitant]
     Active Substance: ROSUVASTATIN CALCIUM
     Route: 065

REACTIONS (8)
  - Pain [Unknown]
  - Injection site erythema [Recovered/Resolved]
  - Feeling abnormal [Unknown]
  - Fatigue [Unknown]
  - Pain in extremity [Unknown]
  - Weight decreased [Unknown]
  - Insomnia [Unknown]
  - Injection site macule [Recovered/Resolved]

NARRATIVE: CASE EVENT DATE: 2016
